FAERS Safety Report 10025887 (Version 3)
Quarter: 2014Q2

REPORT INFORMATION
  Report Type: Spontaneous
  Country: RO (occurrence: RO)
  Receive Date: 20140320
  Receipt Date: 20140415
  Transmission Date: 20141212
  Serious: Yes (Other)
  Sender: FDA-Public Use
  Company Number: ALCN2014RO001868

PATIENT
  Sex: 0

DRUGS (1)
  1. BSS [Suspect]
     Indication: CATARACT OPERATION
     Dosage: 1 UNK, ONCE/SINGLE
     Route: 031

REACTIONS (1)
  - Toxic anterior segment syndrome [Unknown]
